FAERS Safety Report 5701763-5 (Version None)
Quarter: 2008Q2

REPORT INFORMATION
  Report Type: 
  Country: None (occurrence: None)
  Receive Date: 20080410
  Receipt Date: 20080410
  Transmission Date: 20081010
  Serious: Yes (Life-Threatening, Hospitalization)
  Sender: FDA-Public Use
  Company Number: None

PATIENT
  Age: 29 Year
  Sex: Female
  Weight: 104.3273 kg

DRUGS (1)
  1. CIPROFLOXACIN [Suspect]
     Indication: URINARY TRACT INFECTION
     Dosage: 500MG 250MG
     Dates: start: 20080320

REACTIONS (8)
  - ABASIA [None]
  - FEELING JITTERY [None]
  - RASH ERYTHEMATOUS [None]
  - SKIN DISORDER [None]
  - SYNCOPE [None]
  - THROAT TIGHTNESS [None]
  - TREMOR [None]
  - VISION BLURRED [None]
